FAERS Safety Report 4490547-4 (Version None)
Quarter: 2004Q4

REPORT INFORMATION
  Report Type: 
  Country: None (occurrence: None)
  Receive Date: 20041028
  Receipt Date: 20041018
  Transmission Date: 20050328
  Serious: Yes (Hospitalization)
  Sender: FDA-Public Use
  Company Number: 2004239644FR

PATIENT
  Age: 51 Year
  Sex: Male

DRUGS (5)
  1. PANTOPRAZOLE SODIUM [Suspect]
     Dosage: 20 MG, QD, ORAL
     Route: 048
     Dates: end: 20040402
  2. CIPROFLOXACIN [Suspect]
     Dosage: SOME DF, ORAL
     Route: 048
  3. DICLOFENAC (DICLOFENAC) [Suspect]
     Dosage: 150 MG, QD
     Dates: end: 20040402
  4. CHRONOVERA (VERAPAMIL)TABLET [Suspect]
     Dosage: 240 MG, QD, ORAL
     Route: 048
  5. CLAVUMOX (CLAVULANATE POTASSIUIM, AMOXICILLIN)TABLET [Suspect]
     Dosage: SOME DR. ORAL
     Route: 048

REACTIONS (6)
  - BRONCHITIS ACUTE [None]
  - CHLAMYDIA SEROLOGY POSITIVE [None]
  - DRUG INEFFECTIVE [None]
  - HEPATITIS [None]
  - MYCOPLASMA SEROLOGY POSITIVE [None]
  - RHABDOMYOLYSIS [None]
